FAERS Safety Report 19475952 (Version 2)
Quarter: 2021Q3

REPORT INFORMATION
  Report Type: Spontaneous
  Country: CH (occurrence: CH)
  Receive Date: 20210630
  Receipt Date: 20210727
  Transmission Date: 20211014
  Serious: Yes (Hospitalization)
  Sender: FDA-Public Use
  Company Number: CH-TEVA-2021-CH-1927337

PATIENT
  Age: 74 Year
  Sex: Male

DRUGS (6)
  1. FILGRASTIM [Suspect]
     Active Substance: FILGRASTIM
     Indication: COVID-19 PNEUMONIA
     Dosage: 4 INJECTIONS: APRIL, 3, 9, 27 AND MAY 9, 2020
     Route: 065
     Dates: start: 2020, end: 2020
  2. FILGRASTIM [Suspect]
     Active Substance: FILGRASTIM
     Indication: NEUTROPENIA
  3. CONVALESCENT?ANTI?SARS?COV?2?PLASMA [Suspect]
     Active Substance: COVID-19 CONVALESCENT PLASMA
     Indication: COVID-19 PNEUMONIA
     Dosage: FOUR CYCLES
     Route: 050
     Dates: start: 2020, end: 2020
  4. RITUXIMAB. [Suspect]
     Active Substance: RITUXIMAB
     Indication: CHRONIC LYMPHOCYTIC LEUKAEMIA
     Dosage: RECEIVED 6 CYCLES
     Route: 065
     Dates: end: 201912
  5. BENDAMUSTINE [Suspect]
     Active Substance: BENDAMUSTINE
     Indication: CHRONIC LYMPHOCYTIC LEUKAEMIA
     Dosage: RECEIVED 6 CYCLES
     Route: 065
     Dates: end: 201912
  6. IMMUNE GLOBULIN (IMMUNOGLOBULINS NOS) [Suspect]
     Active Substance: IMMUNE GLOBULIN NOS
     Indication: COVID-19 PNEUMONIA
     Dosage: SINGLE DOSE OF 0.4 G/KG
     Route: 042
     Dates: start: 2020, end: 2020

REACTIONS (8)
  - Weight decreased [Unknown]
  - COVID-19 pneumonia [Recovered/Resolved]
  - Drug ineffective for unapproved indication [Unknown]
  - Therapeutic product effect decreased [Unknown]
  - Autonomic nervous system imbalance [Unknown]
  - Off label use [Unknown]
  - Cognitive disorder [Unknown]
  - Fall [Unknown]

NARRATIVE: CASE EVENT DATE: 2020
